FAERS Safety Report 9869510 (Version 1)
Quarter: 2014Q1

REPORT INFORMATION
  Report Type: Spontaneous
  Country: PL (occurrence: None)
  Receive Date: 20140131
  Receipt Date: 20140131
  Transmission Date: 20141002
  Serious: Yes (Hospitalization)
  Sender: FDA-Public Use
  Company Number: 2014P1000589

PATIENT
  Age: 85 Year
  Sex: Female

DRUGS (2)
  1. CARVEDIOL [Suspect]
  2. SOTALOL [Suspect]

REACTIONS (10)
  - Medication error [None]
  - Palpitations [None]
  - Syncope [None]
  - Sinus bradycardia [None]
  - Electrocardiogram QT prolonged [None]
  - Electrocardiogram T wave inversion [None]
  - Electrocardiogram R on T phenomenon [None]
  - Electrocardiogram abnormal [None]
  - Supraventricular extrasystoles [None]
  - Torsade de pointes [None]
